FAERS Safety Report 6309090-2 (Version None)
Quarter: 2009Q3

REPORT INFORMATION
  Report Type: 
  Country: None (occurrence: None)
  Receive Date: 20090814
  Receipt Date: 20090810
  Transmission Date: 20100115
  Serious: Yes (Death)
  Sender: FDA-Public Use
  Company Number: FR-TEVA-205403ISR

PATIENT
  Age: 8 Year
  Sex: Male

DRUGS (3)
  1. ETOPOSIDE [Suspect]
     Dosage: 25 MG/M2/DAY
     Route: 048
  2. CYCLOPHOSPHAMIDE [Suspect]
     Dosage: 30 MG/M2/DAY
     Route: 048
  3. CELECOXIB [Suspect]

REACTIONS (1)
  - SUBDURAL HAEMATOMA [None]
